FAERS Safety Report 6362255-6 (Version None)
Quarter: 2009Q3

REPORT INFORMATION
  Report Type: 
  Country: None (occurrence: None)
  Receive Date: 20090918
  Receipt Date: 20090701
  Transmission Date: 20100115
  Serious: No
  Sender: FDA-Public Use
  Company Number: US-ABBOTT-09P-163-0577836-00

PATIENT
  Sex: Female
  Weight: 73.548 kg

DRUGS (10)
  1. HUMIRA [Suspect]
     Indication: RHEUMATOID ARTHRITIS
     Route: 058
     Dates: start: 20090506, end: 20090608
  2. PLAQUENIL [Suspect]
     Indication: RHEUMATOID ARTHRITIS
  3. ALEVE [Suspect]
     Indication: HEADACHE
     Dates: end: 20090527
  4. ALEVE [Suspect]
     Indication: SINUS HEADACHE
  5. ALEVE [Suspect]
     Indication: EYE PAIN
  6. ALEVE [Suspect]
     Indication: MUSCULAR WEAKNESS
  7. METHOTREXATE [Concomitant]
     Indication: RHEUMATOID ARTHRITIS
  8. SYNTHROID [Concomitant]
     Indication: HYPOTHYROIDISM
     Dosage: DAILY
  9. FOLIC ACID [Concomitant]
     Indication: RHEUMATOID ARTHRITIS
     Dosage: 1MG DAILY
  10. CALCIUM [Concomitant]
     Indication: MINERAL SUPPLEMENTATION
     Dosage: 1000MG DAILY

REACTIONS (13)
  - CHEST DISCOMFORT [None]
  - DIZZINESS [None]
  - DRY EYE [None]
  - DYSPNOEA [None]
  - EYE DISORDER [None]
  - EYE PAIN [None]
  - HEADACHE [None]
  - MUSCULAR WEAKNESS [None]
  - NAUSEA [None]
  - SENSORY DISTURBANCE [None]
  - SINUS HEADACHE [None]
  - SKIN DISORDER [None]
  - WEIGHT INCREASED [None]
